FAERS Safety Report 6406385-9 (Version None)
Quarter: 2009Q4

REPORT INFORMATION
  Report Type: 
  Country: None (occurrence: None)
  Receive Date: 20091019
  Receipt Date: 20091005
  Transmission Date: 20100525
  Serious: Yes (Hospitalization)
  Sender: FDA-Public Use
  Company Number: FR-MYLANLABS-2009S1017390

PATIENT
  Age: 59 Year
  Sex: Female

DRUGS (11)
  1. DI-HYDAN [Suspect]
     Indication: STATUS EPILEPTICUS
  2. LAMOTRIGINE [Concomitant]
     Indication: STATUS EPILEPTICUS
  3. LEVETIRACETAM [Concomitant]
     Indication: STATUS EPILEPTICUS
  4. CLOBAZAM [Concomitant]
  5. PHENOBARBITAL [Concomitant]
     Indication: STATUS EPILEPTICUS
  6. PANTOPRAZOLE SODIUM [Concomitant]
  7. SPIRONOLACTONE [Concomitant]
  8. FUROSEMIDE [Concomitant]
  9. HYDROXYZINE [Concomitant]
  10. PARACETAMOL [Concomitant]
  11. AMOXICILLIN [Concomitant]
     Indication: PYREXIA

REACTIONS (2)
  - APLASIA PURE RED CELL [None]
  - PANCYTOPENIA [None]
